FAERS Safety Report 24696192 (Version 2)
Quarter: 2025Q1

REPORT INFORMATION
  Report Type: Report from Study
  Country: US (occurrence: US)
  Receive Date: 20241204
  Receipt Date: 20250206
  Transmission Date: 20250408
  Serious: Yes (Other)
  Sender: NOVARTIS
  Company Number: US-002147023-NVSC2024US230261

PATIENT
  Sex: Female

DRUGS (1)
  1. KESIMPTA [Suspect]
     Active Substance: OFATUMUMAB
     Indication: Relapsing multiple sclerosis
     Route: 065

REACTIONS (5)
  - Neuropathy peripheral [Unknown]
  - Incontinence [Unknown]
  - Vision blurred [Unknown]
  - Arthralgia [Unknown]
  - Pain [Unknown]
